FAERS Safety Report 4788492-X (Version None)
Quarter: 2005Q4

REPORT INFORMATION
  Report Type: 
  Country: None (occurrence: None)
  Receive Date: 20051005
  Receipt Date: 20051003
  Transmission Date: 20060501
  Serious: Yes (Hospitalization)
  Sender: FDA-Public Use
  Company Number: GB-SANOFI-SYNTHELABO-F01200502019

PATIENT
  Sex: Male

DRUGS (6)
  1. OXALIPLATIN [Suspect]
     Indication: COLON CANCER
     Route: 042
  2. FLUOROURACIL [Suspect]
     Route: 042
  3. LEUCOVORIN [Suspect]
     Route: 042
  4. BEVACIZUMAB [Suspect]
     Route: 042
  5. WARFARIN SODIUM [Concomitant]
     Dates: start: 20050719, end: 20050823
  6. ENOXAPARIN SODIUM [Concomitant]
     Dates: start: 20050801, end: 20050926

REACTIONS (1)
  - SHOULDER PAIN [None]
